FAERS Safety Report 26037673 (Version 4)
Quarter: 2025Q4

REPORT INFORMATION
  Report Type: Report from Study
  Country: US (occurrence: US)
  Receive Date: 20251112
  Receipt Date: 20251226
  Transmission Date: 20260117
  Serious: Yes (Hospitalization)
  Sender: BAUSCH AND LOMB
  Company Number: US-BAUSCH-BH-2025-020222

PATIENT
  Age: 70 Year
  Sex: Female

DRUGS (3)
  1. XIFAXAN [Suspect]
     Active Substance: RIFAXIMIN
     Indication: Hepatic cirrhosis
     Route: 048
  2. XIFAXAN [Suspect]
     Active Substance: RIFAXIMIN
     Route: 048
     Dates: end: 2025
  3. XIFAXAN [Suspect]
     Active Substance: RIFAXIMIN
     Dosage: 2 DOSES PER DAY
     Route: 048
     Dates: start: 20251016

REACTIONS (4)
  - COVID-19 pneumonia [Unknown]
  - Gastrointestinal infection [Unknown]
  - Therapy interrupted [Unknown]
  - Intentional underdose [Unknown]

NARRATIVE: CASE EVENT DATE: 20250101
